FAERS Safety Report 7007106-1 (Version None)
Quarter: 2010Q3

REPORT INFORMATION
  Report Type: 
  Country: None (occurrence: None)
  Receive Date: 20100922
  Receipt Date: 20100914
  Transmission Date: 20110219
  Serious: Yes (Hospitalization)
  Sender: FDA-Public Use
  Company Number: FR-ABBOTT-10P-056-0669317-00

PATIENT
  Sex: Male

DRUGS (4)
  1. HUMIRA [Suspect]
     Indication: INFLAMMATORY BOWEL DISEASE
     Dates: start: 20100201, end: 20100401
  2. REMICADE [Suspect]
     Indication: INFLAMMATORY BOWEL DISEASE
     Route: 042
     Dates: start: 20100525
  3. REMICADE [Suspect]
     Dates: start: 20100727
  4. PREDNISOLONE [Concomitant]
     Indication: INFLAMMATORY BOWEL DISEASE
     Dates: start: 20090101

REACTIONS (2)
  - DERMATITIS HERPETIFORMIS [None]
  - INFLAMMATORY BOWEL DISEASE [None]
